FAERS Safety Report 5519812-6 (Version None)
Quarter: 2007Q4

REPORT INFORMATION
  Report Type: 
  Country: None (occurrence: None)
  Receive Date: 20071116
  Receipt Date: 20070828
  Transmission Date: 20080405
  Serious: No
  Sender: FDA-Public Use
  Company Number: A0677005A

PATIENT
  Age: 85 Year
  Sex: Female

DRUGS (9)
  1. COREG CR [Suspect]
     Dosage: 10MG PER DAY
     Route: 048
     Dates: start: 20070701
  2. PLAVIX [Concomitant]
  3. ASPIRIN [Concomitant]
  4. LISINOPRIL [Concomitant]
  5. REGLAN [Concomitant]
  6. PROTONIX [Concomitant]
  7. FUROSEMIDE [Concomitant]
  8. POTASSIUM CHLORIDE [Concomitant]
  9. VITAMINS [Concomitant]

REACTIONS (4)
  - COLD SWEAT [None]
  - DEPRESSION [None]
  - FATIGUE [None]
  - TREMOR [None]
